FAERS Safety Report 15738110 (Version 2)
Quarter: 2019Q1

REPORT INFORMATION
  Report Type: Spontaneous
  Country: US (occurrence: US)
  Receive Date: 20181219
  Receipt Date: 20190110
  Transmission Date: 20190417
  Serious: No
  Sender: FDA-Public Use
  Company Number: US-SHIRE-US201848911

PATIENT
  Sex: Male

DRUGS (1)
  1. GATTEX [Suspect]
     Active Substance: TEDUGLUTIDE\WATER
     Indication: SHORT-BOWEL SYNDROME
     Dosage: O.3800
     Route: 065
     Dates: start: 20180810

REACTIONS (3)
  - Device difficult to use [Unknown]
  - Diarrhoea [Unknown]
  - Stoma complication [Unknown]
